FAERS Safety Report 8618097-1 (Version None)
Quarter: 2012Q3

REPORT INFORMATION
  Report Type: 
  Country: None (occurrence: None)
  Receive Date: 20120824
  Receipt Date: 20120420
  Transmission Date: 20120928
  Serious: No
  Sender: FDA-Public Use
  Company Number: US-ASTRAZENECA-2012SE26255

PATIENT
  Age: 86 Year
  Sex: Female

DRUGS (7)
  1. ENALAPRIL MALEATE [Concomitant]
     Dosage: 10/25 MG
  2. PRAVACHOL [Concomitant]
  3. SYMBICORT [Suspect]
     Indication: CHRONIC OBSTRUCTIVE PULMONARY DISEASE
     Dosage: 80/4.5 MCG FREQUENCY UNKNOWN
     Route: 055
  4. ASPIRIN [Concomitant]
  5. NORVASC [Concomitant]
  6. COREG [Concomitant]
  7. PROVENTIL-HFA [Concomitant]

REACTIONS (2)
  - CHEST DISCOMFORT [None]
  - DYSPNOEA [None]
